FAERS Safety Report 14895236 (Version 2)
Quarter: 2018Q2

REPORT INFORMATION
  Report Type: Spontaneous
  Country: US (occurrence: US)
  Receive Date: 20180515
  Receipt Date: 20180522
  Transmission Date: 20180711
  Serious: No
  Sender: FDA-Public Use
  Company Number: US-PFIZER INC-2018197113

PATIENT
  Age: 62 Year
  Sex: Female

DRUGS (6)
  1. ENBREL [Suspect]
     Active Substance: ETANERCEPT
     Dosage: UNK
  2. METHOTREXATE SODIUM. [Suspect]
     Active Substance: METHOTREXATE SODIUM
     Dosage: UNK
     Route: 048
  3. HUMIRA [Suspect]
     Active Substance: ADALIMUMAB
     Dosage: UNK
  4. OTEZLA [Suspect]
     Active Substance: APREMILAST
     Dosage: UNK
  5. STELARA [Suspect]
     Active Substance: USTEKINUMAB
     Dosage: UNK
  6. ORENCIA [Suspect]
     Active Substance: ABATACEPT
     Dosage: UNK

REACTIONS (1)
  - Drug ineffective [Unknown]
